FAERS Safety Report 8012137-9 (Version None)
Quarter: 2011Q4

REPORT INFORMATION
  Report Type: 
  Country: None (occurrence: None)
  Receive Date: 20111228
  Receipt Date: 20111222
  Transmission Date: 20120403
  Serious: Yes (Other)
  Sender: FDA-Public Use
  Company Number: BR-PFIZER INC-2011311730

PATIENT
  Age: 60 Year
  Sex: Male

DRUGS (1)
  1. IBUPROFEN (ADVIL) [Suspect]
     Indication: HEADACHE
     Dosage: 400 MG UNSPECIFIED FREQUENCY
     Route: 048
     Dates: start: 20111204, end: 20111204

REACTIONS (6)
  - VISUAL IMPAIRMENT [None]
  - EYE DISORDER [None]
  - VITREOUS HAEMORRHAGE [None]
  - VISION BLURRED [None]
  - VISUAL ACUITY REDUCED [None]
  - DRUG HYPERSENSITIVITY [None]
